FAERS Safety Report 8164865-2 (Version None)
Quarter: 2012Q1

REPORT INFORMATION
  Report Type: 
  Country: None (occurrence: None)
  Receive Date: 20120227
  Receipt Date: 20120216
  Transmission Date: 20120608
  Serious: No
  Sender: FDA-Public Use
  Company Number: US-BIOGENIDEC-2012BI006201

PATIENT
  Sex: Female

DRUGS (3)
  1. PREVACID [Concomitant]
     Indication: ABDOMINAL PAIN UPPER
  2. OMEPRAZOLE [Concomitant]
     Indication: ABDOMINAL PAIN UPPER
  3. TYSABRI [Suspect]
     Indication: MULTIPLE SCLEROSIS
     Route: 042
     Dates: start: 20101025

REACTIONS (3)
  - BONE PAIN [None]
  - VIRAL SINUSITIS [None]
  - ARTHRALGIA [None]
